FAERS Safety Report 9919521 (Version 2)
Quarter: 2014Q2

REPORT INFORMATION
  Report Type: Report from Study
  Country: DE (occurrence: TR)
  Receive Date: 20140224
  Receipt Date: 20140411
  Transmission Date: 20141212
  Serious: Yes (Death, Hospitalization)
  Sender: FDA-Public Use
  Company Number: DE-ACTELION-A-US2014-95273

PATIENT
  Age: 52 Year
  Sex: 0
  Weight: 80 kg

DRUGS (1)
  1. VENTAVIS [Suspect]
     Indication: PULMONARY ARTERIAL HYPERTENSION
     Dosage: UNK, 6 TIMES A DAY
     Route: 055
     Dates: start: 20111208, end: 20140214

REACTIONS (2)
  - Pulmonary arterial hypertension [Fatal]
  - General physical health deterioration [Unknown]
